FAERS Safety Report 4412186-3 (Version None)
Quarter: 2004Q2

REPORT INFORMATION
  Report Type: 
  Country: None (occurrence: None)
  Receive Date: 20040630
  Receipt Date: 20040430
  Transmission Date: 20050107
  Serious: No
  Sender: FDA-Public Use
  Company Number: 04P-163-0259390-00

PATIENT
  Age: 54 Year
  Sex: Male
  Weight: 138.3471 kg

DRUGS (8)
  1. HUMIRA [Suspect]
     Indication: RHEUMATOID ARTHRITIS
     Dosage: 40 MG, 1 IN 2 WK, SUBCUTANEOUS
     Route: 058
     Dates: start: 20040416
  2. GLUCOPHAGE [Concomitant]
  3. GLIPIZIDE [Concomitant]
  4. ACTOS [Concomitant]
  5. RAMIPRIL [Concomitant]
  6. METHOTREXATE [Concomitant]
  7. CLARINEX [Concomitant]
  8. RABEPRAZOLE SODIUM [Concomitant]

REACTIONS (1)
  - INJECTION SITE BURNING [None]
